FAERS Safety Report 8969091 (Version 1)
Quarter: 2012Q4

REPORT INFORMATION
  Report Type: Spontaneous
  Country: US (occurrence: None)
  Receive Date: 20121214
  Receipt Date: 20121214
  Transmission Date: 20130627
  Serious: Yes (Life-Threatening, Hospitalization)
  Sender: FDA-Public Use
  Company Number: None

PATIENT

DRUGS (1)
  1. MAXALT MLT [Suspect]
     Dates: start: 20121202, end: 20121202

REACTIONS (7)
  - Arteriospasm coronary [None]
  - Chest pain [None]
  - Chest discomfort [None]
  - Paraesthesia [None]
  - Hypoaesthesia [None]
  - Loss of consciousness [None]
  - Cardiac arrest [None]
